FAERS Safety Report 9011216 (Version 1)
Quarter: 2013Q1

REPORT INFORMATION
  Report Type: Spontaneous
  Country: US (occurrence: US)
  Receive Date: 20130109
  Receipt Date: 20130109
  Transmission Date: 20140127
  Serious: No
  Sender: FDA-Public Use
  Company Number: US-TEVA-379190USA

PATIENT
  Age: 33 None
  Sex: Female
  Weight: 59.02 kg

DRUGS (6)
  1. PROAIR HFA [Suspect]
     Indication: ASTHMA
     Route: 055
     Dates: start: 20130101
  2. PROAIR HFA [Suspect]
     Indication: BRONCHITIS
  3. ACETAMINOPHEN [Concomitant]
     Indication: PYREXIA
     Route: 048
  4. ACETAMINOPHEN [Concomitant]
     Indication: HEADACHE
  5. IBUPROFEN [Concomitant]
     Indication: PYREXIA
     Route: 048
  6. IBUPROFEN [Concomitant]
     Indication: HEADACHE

REACTIONS (2)
  - Burning sensation [Recovered/Resolved]
  - Epistaxis [Unknown]
